FAERS Safety Report 10955574 (Version 2)
Quarter: 2015Q3

REPORT INFORMATION
  Report Type: Spontaneous
  Country: US (occurrence: US)
  Receive Date: 20150326
  Receipt Date: 20150728
  Transmission Date: 20151125
  Serious: No
  Sender: FDA-Public Use
  Company Number: US-ASTRAZENECA-2015SE27797

PATIENT
  Age: 709 Month
  Sex: Male
  Weight: 109.8 kg

DRUGS (14)
  1. FLAXSEED [Concomitant]
     Active Substance: FLAX SEED
  2. LOVAZA [Concomitant]
     Active Substance: OMEGA-3-ACID ETHYL ESTERS
  3. METFORMIN [Concomitant]
     Active Substance: METFORMIN HYDROCHLORIDE
  4. LEVOTHYROXINE. [Concomitant]
     Active Substance: LEVOTHYROXINE
     Indication: HYPOTHYROIDISM
  5. BYDUREON [Suspect]
     Active Substance: EXENATIDE
     Indication: TYPE 2 DIABETES MELLITUS
     Route: 058
     Dates: start: 201406
  6. ATENOLOL. [Suspect]
     Active Substance: ATENOLOL
     Route: 048
  7. BYDUREON [Suspect]
     Active Substance: EXENATIDE
     Indication: TYPE 2 DIABETES MELLITUS
     Route: 058
     Dates: start: 2015
  8. FENOFIBRATE. [Concomitant]
     Active Substance: FENOFIBRATE
  9. AMEROL [Concomitant]
  10. TESTOSTERONE. [Concomitant]
     Active Substance: TESTOSTERONE
  11. ASPIRIN. [Concomitant]
     Active Substance: ASPIRIN
  12. WELCHOL [Concomitant]
     Active Substance: COLESEVELAM HYDROCHLORIDE
  13. VITAMIN D [Concomitant]
     Active Substance: CHOLECALCIFEROL
  14. PLAVIX [Concomitant]
     Active Substance: CLOPIDOGREL BISULFATE

REACTIONS (5)
  - Blood glucose increased [Recovered/Resolved]
  - Glycosylated haemoglobin increased [Not Recovered/Not Resolved]
  - Injection site nodule [Not Recovered/Not Resolved]
  - Weight decreased [Unknown]
  - Blood glucose abnormal [Unknown]

NARRATIVE: CASE EVENT DATE: 201406
